FAERS Safety Report 24604480 (Version 2)
Quarter: 2024Q4

REPORT INFORMATION
  Report Type: Report from Study
  Country: US (occurrence: US)
  Receive Date: 20241111
  Receipt Date: 20241113
  Transmission Date: 20250114
  Serious: Yes (Other)
  Sender: NOVARTIS
  Company Number: US-002147023-NVSC2024US216562

PATIENT
  Sex: Female
  Weight: 131.52 kg

DRUGS (1)
  1. COSENTYX [Suspect]
     Active Substance: SECUKINUMAB
     Indication: Product used for unknown indication
     Dosage: UNK, QW
     Route: 058

REACTIONS (3)
  - Embolism arterial [Unknown]
  - Product distribution issue [Unknown]
  - Product temperature excursion issue [Unknown]
